FAERS Safety Report 6328121-7 (Version None)
Quarter: 2009Q3

REPORT INFORMATION
  Report Type: 
  Country: None (occurrence: None)
  Receive Date: 20090825
  Receipt Date: 20090121
  Transmission Date: 20100115
  Serious: No
  Sender: FDA-Public Use
  Company Number: US-ABBOTT-09P-163-0499240-00

PATIENT
  Sex: Female
  Weight: 72.64 kg

DRUGS (1)
  1. SYNTHROID [Suspect]
     Indication: HYPOTHYROIDISM
     Route: 048
     Dates: start: 19980101

REACTIONS (5)
  - ANGINA PECTORIS [None]
  - FATIGUE [None]
  - FEELING ABNORMAL [None]
  - HOT FLUSH [None]
  - LIVER FUNCTION TEST ABNORMAL [None]
